FAERS Safety Report 11146842 (Version 2)
Quarter: 2015Q3

REPORT INFORMATION
  Report Type: Spontaneous
  Country: US (occurrence: US)
  Receive Date: 20150528
  Receipt Date: 20150727
  Transmission Date: 20151125
  Serious: Yes (Other)
  Sender: FDA-Public Use
  Company Number: US-JNJFOC-20150512437

PATIENT
  Age: 74 Year
  Sex: Female
  Weight: 83.01 kg

DRUGS (1)
  1. INVOKANA [Suspect]
     Active Substance: CANAGLIFLOZIN
     Indication: TYPE 2 DIABETES MELLITUS
     Route: 048
     Dates: start: 20150310, end: 20150410

REACTIONS (4)
  - Energy increased [Recovered/Resolved]
  - Decreased appetite [Unknown]
  - Glycosylated haemoglobin increased [Unknown]
  - Weight decreased [Recovered/Resolved]

NARRATIVE: CASE EVENT DATE: 201503
